FAERS Safety Report 24769860 (Version 1)
Quarter: 2024Q4

REPORT INFORMATION
  Report Type: Spontaneous
  Country: US (occurrence: US)
  Receive Date: 20241224
  Receipt Date: 20241224
  Transmission Date: 20250115
  Serious: No
  Sender: CELLTRION
  Company Number: US-CELLTRION INC.-2024US002259

PATIENT

DRUGS (2)
  1. TRUXIMA [Suspect]
     Active Substance: RITUXIMAB-ABBS
     Indication: Congenital coagulopathy
     Dosage: 375 MG/M2
     Dates: start: 20231220
  2. TRUXIMA [Suspect]
     Active Substance: RITUXIMAB-ABBS
     Indication: Haemorrhagic disorder
     Dosage: 375 MG/M2
     Dates: start: 20231227

REACTIONS (1)
  - Off label use [Unknown]
